FAERS Safety Report 4754387-0 (Version None)
Quarter: 2005Q3

REPORT INFORMATION
  Report Type: 
  Country: None (occurrence: None)
  Receive Date: 20050825
  Receipt Date: 20050825
  Transmission Date: 20060218
  Serious: Yes (Hospitalization)
  Sender: FDA-Public Use
  Company Number: None

PATIENT
  Age: 44 Year
  Sex: Female
  Weight: 66.6788 kg

DRUGS (1)
  1. LAMICTAL [Suspect]
     Dosage: 50 MG.   BID   PO
     Route: 048
     Dates: start: 20050615, end: 20050706

REACTIONS (7)
  - CORNEAL SCAR [None]
  - DRY EYE [None]
  - EYE PRURITUS [None]
  - EYELID DISORDER [None]
  - INJURY CORNEAL [None]
  - PHOTOPHOBIA [None]
  - STEVENS-JOHNSON SYNDROME [None]
